FAERS Safety Report 5186726-3 (Version None)
Quarter: 2006Q4

REPORT INFORMATION
  Report Type: 
  Country: None (occurrence: None)
  Receive Date: 20061213
  Receipt Date: 20061127
  Transmission Date: 20070319
  Serious: Yes (Hospitalization)
  Sender: FDA-Public Use
  Company Number: DSA_28689_2006

PATIENT
  Age: 80 Year
  Sex: Female
  Weight: 45.3597 kg

DRUGS (7)
  1. CARDIZEM CD [Suspect]
     Indication: ANGINA PECTORIS
     Dosage: 240 MG QD PO
     Route: 048
     Dates: start: 19940101
  2. CARDIZEM CD [Suspect]
     Indication: HYPERTENSION
     Dosage: 240 MG QD PO
     Route: 048
     Dates: start: 19940101
  3. SYNTHROID [Concomitant]
  4. NITROGLYCERIN [Concomitant]
  5. ASPIRIN [Concomitant]
  6. ZALATAN [Concomitant]
  7. ALPHAGAN [Concomitant]

REACTIONS (13)
  - BLADDER DISORDER [None]
  - BLADDER SPASM [None]
  - BURNING SENSATION [None]
  - CEREBROVASCULAR ACCIDENT [None]
  - DYSURIA [None]
  - ERYTHEMA [None]
  - GLAUCOMA [None]
  - MUSCLE SPASMS [None]
  - NOCTURIA [None]
  - POLYURIA [None]
  - STRESS [None]
  - THERAPY NON-RESPONDER [None]
  - VASCULAR BYPASS GRAFT [None]
